FAERS Safety Report 23076823 (Version 1)
Quarter: 2023Q4

REPORT INFORMATION
  Report Type: Report from Study
  Country: JP (occurrence: JP)
  Receive Date: 20231018
  Receipt Date: 20231018
  Transmission Date: 20240109
  Serious: Yes (Death, Hospitalization)
  Sender: FDA-Public Use
  Company Number: JP-REGENERON PHARMACEUTICALS, INC.-2023-041607

PATIENT
  Age: 66 Year
  Sex: Male

DRUGS (14)
  1. CEMIPLIMAB [Suspect]
     Active Substance: CEMIPLIMAB
     Indication: Non-small cell lung cancer stage IV
     Dosage: 350 MG, Q3W
     Route: 042
     Dates: start: 20220802, end: 20230221
  2. PEMETREXED [Suspect]
     Active Substance: PEMETREXED
     Indication: Non-small cell lung cancer stage IV
     Dosage: 500 MG/M2, Q3W
     Route: 042
     Dates: start: 20220802, end: 20230221
  3. CARBOPLATIN [Suspect]
     Active Substance: CARBOPLATIN
     Indication: Non-small cell lung cancer stage IV
     Dosage: 5 MG/ML/MIN Q3W
     Route: 042
     Dates: start: 20220802, end: 20221108
  4. HYDROXOCOBALAMIN ACETATE [Concomitant]
     Active Substance: HYDROXOCOBALAMIN ACETATE
     Indication: Premedication
     Dosage: 1 MG Q9WK
     Route: 030
     Dates: start: 20220728, end: 20230221
  5. DEXAMETHASONE SODIUM PHOSPHATE [Concomitant]
     Active Substance: DEXAMETHASONE SODIUM PHOSPHATE
     Indication: Premedication
     Dosage: 9.9 MG, Q3W
     Route: 042
     Dates: start: 20220802, end: 20230221
  6. GRANISETRON HYDROCHLORIDE [Concomitant]
     Active Substance: GRANISETRON HYDROCHLORIDE
     Indication: Premedication
     Dosage: 3 MG, Q3W
     Route: 042
     Dates: start: 20220802, end: 20230221
  7. FOSAPREPITANT [Concomitant]
     Active Substance: FOSAPREPITANT
     Indication: Premedication
     Dosage: 150 MG, Q3W
     Route: 042
     Dates: start: 20220802, end: 20230221
  8. OXYCODONE HYDROCHLORIDE TRIHYDRATE [Concomitant]
     Active Substance: OXYCODONE HYDROCHLORIDE TRIHYDRATE
     Indication: Non-small cell lung cancer
     Dosage: 5 MG, BID
     Route: 048
     Dates: start: 20220628, end: 20230313
  9. MOSAPRIDE CITRATE DIHYDRATE [Concomitant]
     Active Substance: MOSAPRIDE CITRATE DIHYDRATE
     Indication: Gastritis prophylaxis
     Dosage: 15 MG, QID
     Route: 048
     Dates: start: 20220620, end: 20230313
  10. LOXOPROFEN SODIUM DIHYDRATE [Concomitant]
     Active Substance: LOXOPROFEN SODIUM DIHYDRATE
     Indication: Non-small cell lung cancer
     Dosage: 180 MG, QID
     Route: 048
     Dates: start: 20220620, end: 20230313
  11. MAGNESIUM OXIDE [Concomitant]
     Active Substance: MAGNESIUM OXIDE
     Indication: Constipation prophylaxis
     Dosage: 990 MG, TID
     Route: 048
     Dates: start: 20220620, end: 20230313
  12. ENTEROCOCCUS FAECIUM, CLOSTRIDIUM [Concomitant]
     Indication: Constipation prophylaxis
     Dosage: 3 TABLET, QID
     Route: 048
     Dates: start: 20220620, end: 20230313
  13. NALDEMEDINE TOSYLATE [Concomitant]
     Active Substance: NALDEMEDINE TOSYLATE
     Indication: Constipation prophylaxis
     Dosage: 0.2 MG, QD
     Route: 048
     Dates: start: 20220621, end: 20230313
  14. VONOPRAZAN FUMARATE [Concomitant]
     Active Substance: VONOPRAZAN FUMARATE
     Indication: Gastritis prophylaxis
     Dosage: 20 MG, QD
     Route: 048
     Dates: start: 20220621, end: 20230313

REACTIONS (1)
  - Pneumonitis [Fatal]

NARRATIVE: CASE EVENT DATE: 20230313
